FAERS Safety Report 25837670 (Version 1)
Quarter: 2025Q3

REPORT INFORMATION
  Report Type: Spontaneous
  Country: US (occurrence: None)
  Receive Date: 20250923
  Receipt Date: 20250923
  Transmission Date: 20251020
  Serious: Yes (Life-Threatening, Hospitalization, Other)
  Sender: FDA-CTU
  Company Number: None

PATIENT
  Age: 47 Year
  Sex: Female
  Weight: 93.6 kg

DRUGS (7)
  1. AUROVELA 1.5/30 [Suspect]
     Active Substance: ETHINYL ESTRADIOL\NORETHINDRONE ACETATE
     Indication: Hormone therapy
     Route: 048
     Dates: start: 20250305, end: 20250725
  2. ELIQUIS [Concomitant]
     Active Substance: APIXABAN
  3. LOSARTAN [Concomitant]
     Active Substance: LOSARTAN
  4. MAGNESIUM [Concomitant]
     Active Substance: MAGNESIUM
  5. VITAMIN D3 [Concomitant]
     Active Substance: CHOLECALCIFEROL
  6. ZINC [Concomitant]
     Active Substance: ZINC
  7. HERBALS [Concomitant]
     Active Substance: HERBALS

REACTIONS (5)
  - Pulmonary embolism [None]
  - Lung disorder [None]
  - Pleurisy [None]
  - Pulmonary pain [None]
  - Blood pressure abnormal [None]

NARRATIVE: CASE EVENT DATE: 20250730
